FAERS Safety Report 4339231-8 (Version None)
Quarter: 2004Q2

REPORT INFORMATION
  Report Type: 
  Country: None (occurrence: None)
  Receive Date: 20040415
  Receipt Date: 20040407
  Transmission Date: 20050107
  Serious: Yes (Hospitalization)
  Sender: FDA-Public Use
  Company Number: 200411453FR

PATIENT
  Age: 65 Year
  Sex: Female

DRUGS (2)
  1. ARAVA [Suspect]
     Indication: RHEUMATOID ARTHRITIS
     Route: 048
     Dates: start: 20030918, end: 20040310
  2. UNKNOWN DRUG [Concomitant]

REACTIONS (4)
  - BRAIN STEM ISCHAEMIA [None]
  - CEREBELLAR INFARCTION [None]
  - CHEST PAIN [None]
  - HYPERTENSION [None]
